FAERS Safety Report 4996588-2 (Version None)
Quarter: 2006Q2

REPORT INFORMATION
  Report Type: 
  Country: None (occurrence: None)
  Receive Date: 20060505
  Receipt Date: 20060425
  Transmission Date: 20061013
  Serious: Yes (Life-Threatening, Hospitalization)
  Sender: FDA-Public Use
  Company Number: 2001-07-1936

PATIENT
  Age: 31 Year
  Sex: Male

DRUGS (5)
  1. PEG-INTRON [Suspect]
     Indication: HEPATITIS C
     Dosage: 100 MCG QW SUBCUTANEOUS
     Route: 058
     Dates: start: 20010307, end: 20010720
  2. RIBAVIRIN [Suspect]
     Indication: HEPATITIS C
     Dosage: 800 MG QD ORAL
     Route: 048
     Dates: start: 20010307, end: 20010726
  3. ZERIT [Suspect]
     Indication: HIV TEST POSITIVE
     Dosage: 40 MG BID ORAL
     Route: 048
     Dates: start: 19980827, end: 20010726
  4. VIDEX [Suspect]
     Indication: HIV TEST POSITIVE
     Dosage: 400 MG QD ORAL
     Route: 048
     Dates: start: 19980827, end: 20010726
  5. VIRACEPT [Suspect]
     Indication: HIV TEST POSITIVE
     Dosage: 1200 MG BID ORAL
     Route: 048
     Dates: start: 19980827, end: 20010726

REACTIONS (10)
  - ANOREXIA [None]
  - ASTHENIA [None]
  - BLOOD AMYLASE INCREASED [None]
  - BLOOD BICARBONATE DECREASED [None]
  - BLOOD CHOLESTEROL INCREASED [None]
  - BLOOD LACTIC ACID INCREASED [None]
  - HYPERTRIGLYCERIDAEMIA [None]
  - LIPASE INCREASED [None]
  - MITOCHONDRIAL TOXICITY [None]
  - NAUSEA [None]
